FAERS Safety Report 24292137 (Version 1)
Quarter: 2024Q3

REPORT INFORMATION
  Report Type: Spontaneous
  Country: US (occurrence: None)
  Receive Date: 20240906
  Receipt Date: 20240906
  Transmission Date: 20241017
  Serious: No
  Sender: DOMPE FARMACEUTICI
  Company Number: US-FARMAPROD-202307-2168

PATIENT
  Sex: Male

DRUGS (17)
  1. OXERVATE [Suspect]
     Active Substance: CENEGERMIN-BKBJ
     Indication: Neurotrophic keratopathy
     Route: 047
     Dates: start: 20230526
  2. OIL OF OREGANO [Concomitant]
  3. AZOPT [Concomitant]
     Active Substance: BRINZOLAMIDE
  4. PRILOSEC OTC [Concomitant]
     Active Substance: OMEPRAZOLE MAGNESIUM
  5. LISINOPRIL [Concomitant]
     Active Substance: LISINOPRIL
  6. TYLENOL [Concomitant]
     Active Substance: ACETAMINOPHEN
  7. MINERALS\VITAMINS [Concomitant]
     Active Substance: MINERALS\VITAMINS
     Dosage: .4-300-250
  8. FISH OIL [Concomitant]
     Active Substance: FISH OIL
     Dosage: 100-160 MG
  9. VITAMIN C [Concomitant]
     Active Substance: ASCORBIC ACID
  10. AMLODIPINE BESYLATE [Concomitant]
     Active Substance: AMLODIPINE BESYLATE
  11. METOPROLOL SUCCINATE [Concomitant]
     Active Substance: METOPROLOL SUCCINATE
  12. PREDNISOLONE NEPAFENAC [Concomitant]
  13. ZIOPTAN [Concomitant]
     Active Substance: TAFLUPROST
  14. RHOPRESSA [Concomitant]
     Active Substance: NETARSUDIL MESYLATE
  15. BRIMONIDINE TARTRATE [Concomitant]
     Active Substance: BRIMONIDINE TARTRATE
  16. ELIQUIS [Concomitant]
     Active Substance: APIXABAN
  17. ASPIRIN [Concomitant]
     Active Substance: ASPIRIN

REACTIONS (1)
  - Eye irritation [Unknown]
